FAERS Safety Report 6056254-1 (Version None)
Quarter: 2009Q1

REPORT INFORMATION
  Report Type: 
  Country: None (occurrence: None)
  Receive Date: 20090126
  Receipt Date: 20090126
  Transmission Date: 20090719
  Serious: Yes (Hospitalization)
  Sender: FDA-Public Use
  Company Number: None

PATIENT
  Sex: Female
  Weight: 40 kg

DRUGS (1)
  1. PEG-L ASPARAGINASE (K-H) [Suspect]
     Dosage: 3500 UNIT
     Dates: end: 20090117

REACTIONS (1)
  - BLOOD GLUCOSE INCREASED [None]
